FAERS Safety Report 8223512-1 (Version None)
Quarter: 2012Q1

REPORT INFORMATION
  Report Type: 
  Country: None (occurrence: None)
  Receive Date: 20120321
  Receipt Date: 20120319
  Transmission Date: 20120608
  Serious: Yes (Hospitalization)
  Sender: FDA-Public Use
  Company Number: US-PFIZER INC-2012071452

PATIENT
  Sex: Male

DRUGS (5)
  1. ACCUPRIL [Suspect]
     Dosage: 40 MG, 1X/DAY
     Route: 048
     Dates: end: 20120301
  2. ACCUPRIL [Suspect]
     Dosage: UNK
     Route: 048
  3. ACCUPRIL [Suspect]
     Indication: HYPERTENSION
     Dosage: 40 MG, 1X/DAY
     Route: 048
  4. ACCUPRIL [Suspect]
     Dosage: UNK
     Route: 048
  5. ACCUPRIL [Suspect]
     Dosage: 5 MG, 1X/DAY
     Route: 048
     Dates: start: 20120301

REACTIONS (8)
  - CEREBROVASCULAR ACCIDENT [None]
  - PSYCHOMOTOR HYPERACTIVITY [None]
  - BLOOD CHOLESTEROL INCREASED [None]
  - DYSGRAPHIA [None]
  - MALAISE [None]
  - BLOOD TRIGLYCERIDES INCREASED [None]
  - SPEECH DISORDER [None]
  - WEIGHT DECREASED [None]
